FAERS Safety Report 6103065-4 (Version None)
Quarter: 2009Q1

REPORT INFORMATION
  Report Type: 
  Country: None (occurrence: None)
  Receive Date: 20090227
  Receipt Date: 20090213
  Transmission Date: 20090719
  Serious: Yes (Other)
  Sender: FDA-Public Use
  Company Number: AVE_00277_2009

PATIENT
  Sex: Male
  Weight: 71.2147 kg

DRUGS (14)
  1. NICOTINE [Suspect]
     Indication: SMOKING CESSATION THERAPY
     Dosage: 14 MG QD TRANSDERMAL
     Route: 062
     Dates: start: 20090101, end: 20090120
  2. NITROGLYCERIN [Concomitant]
  3. EXELON / 01383201 [Concomitant]
  4. SIMVASTATIN [Concomitant]
  5. ASPIRIN [Concomitant]
  6. NORVASC [Concomitant]
  7. EZETROL [Concomitant]
  8. PLAVIX [Concomitant]
  9. CLOBAZAM [Concomitant]
  10. SERTRALINE [Concomitant]
  11. CARBAMAZEPINE [Concomitant]
  12. QUETIAPINE FUMARATE [Concomitant]
  13. METOPROLOL TARTRATE [Concomitant]
  14. ADVAIR HFA [Concomitant]

REACTIONS (2)
  - ANGINA PECTORIS [None]
  - CONDITION AGGRAVATED [None]
